FAERS Safety Report 23826774 (Version 2)
Quarter: 2024Q3

REPORT INFORMATION
  Report Type: Spontaneous
  Country: US (occurrence: US)
  Receive Date: 20240507
  Receipt Date: 20240826
  Transmission Date: 20241017
  Serious: No
  Sender: BRISTOL MYERS SQUIBB
  Company Number: US-BRISTOL-MYERS SQUIBB COMPANY-2024-070893

PATIENT
  Age: 92 Year
  Sex: Male

DRUGS (1)
  1. OPDIVO [Suspect]
     Active Substance: NIVOLUMAB
     Indication: Pancreatic carcinoma
     Dosage: DOSE : 360 MG;    FREQ : EVERY 3 WEEKS?STRENGTH AND PRESENTATION OF THE AE : 120 MG VIALS AND 240 MG
     Route: 042
     Dates: end: 20240423

REACTIONS (1)
  - Off label use [Unknown]
